FAERS Safety Report 22288252 (Version 1)
Quarter: 2023Q2

REPORT INFORMATION
  Report Type: Spontaneous
  Country: US (occurrence: US)
  Receive Date: 20230505
  Receipt Date: 20230505
  Transmission Date: 20230721
  Serious: No
  Sender: FDA-Public Use
  Company Number: US-LEO Pharma-351685

PATIENT
  Sex: Male

DRUGS (2)
  1. ADBRY [Suspect]
     Active Substance: TRALOKINUMAB-LDRM
     Indication: Psoriasis
     Dosage: INJECT 2 SYRINGES UNDER THE SKIN EVERY 2 WEEKS
     Route: 058
     Dates: start: 202302
  2. ADBRY [Suspect]
     Active Substance: TRALOKINUMAB-LDRM
     Indication: Dermatitis atopic
     Dosage: INJECT 2 SYRINGES UNDER THE SKIN EVERY 2 WEEKS
     Route: 058
     Dates: start: 202302

REACTIONS (1)
  - Vision blurred [Recovered/Resolved]
